FAERS Safety Report 15556902 (Version 1)
Quarter: 2018Q4

REPORT INFORMATION
  Report Type: Spontaneous
  Country: US (occurrence: US)
  Receive Date: 20181026
  Receipt Date: 20181026
  Transmission Date: 20190205
  Serious: No
  Sender: FDA-Public Use
  Company Number: US-B.I. PHARMACEUTICALS,INC./RIDGEFIELD-2018-BI-051064

PATIENT
  Sex: Male

DRUGS (5)
  1. INVOKANA [Concomitant]
     Active Substance: CANAGLIFLOZIN
     Indication: TYPE 2 DIABETES MELLITUS
     Dosage: FORM STRENGTH: 300MG; FORMULATION: CAPLET
     Route: 048
     Dates: start: 2016
  2. LISINOPRIL. [Concomitant]
     Active Substance: LISINOPRIL
     Indication: HYPERTENSION
     Dosage: FORM STRENGTH: 30MG; FORMULATION: TABLET
     Route: 048
     Dates: start: 2013
  3. ASPIRIN. [Concomitant]
     Active Substance: ASPIRIN
     Indication: CARDIOVASCULAR EVENT PROPHYLAXIS
     Dosage: FORM STRENGTH: 81MG; FORMULATION: TABLET
     Route: 048
     Dates: start: 2013
  4. JENTADUETO [Suspect]
     Active Substance: LINAGLIPTIN\METFORMIN HYDROCHLORIDE
     Indication: TYPE 2 DIABETES MELLITUS
     Dosage: FORM STRENGTH: 2.5 MG / 1000 MG; FORMULATION: TABLET?ACTION(S) TAKEN WITH : DOSE NOT CHANGED
     Route: 048
     Dates: start: 2016
  5. LOVASTATIN. [Concomitant]
     Active Substance: LOVASTATIN
     Indication: BLOOD CHOLESTEROL INCREASED
     Dosage: FORM STRENGTH: 40MG; FORMULATION: TABLET
     Route: 048
     Dates: start: 2013

REACTIONS (1)
  - Glycosylated haemoglobin [Unknown]

NARRATIVE: CASE EVENT DATE: 2016
